FAERS Safety Report 17294901 (Version 1)
Quarter: 2020Q1

REPORT INFORMATION
  Report Type: Spontaneous
  Country: US (occurrence: US)
  Receive Date: 20200121
  Receipt Date: 20200121
  Transmission Date: 20200409
  Serious: No
  Sender: FDA-Public Use
  Company Number: US-PFIZER INC-2020022962

PATIENT
  Age: 23 Year
  Sex: Female

DRUGS (1)
  1. ZOLOFT [Suspect]
     Active Substance: SERTRALINE HYDROCHLORIDE
     Dosage: 25 MG, UNK
     Dates: start: 20200110, end: 20200112

REACTIONS (3)
  - Euphoric mood [Unknown]
  - Feeling abnormal [Unknown]
  - Somnolence [Unknown]

NARRATIVE: CASE EVENT DATE: 20200110
